FAERS Safety Report 11342536 (Version 1)
Quarter: 2015Q3

REPORT INFORMATION
  Report Type: Spontaneous
  Country: DE (occurrence: DE)
  Receive Date: 20150805
  Receipt Date: 20150805
  Transmission Date: 20151125
  Serious: Yes (Life-Threatening)
  Sender: FDA-Public Use
  Company Number: DE-ELI_LILLY_AND_COMPANY-DE201507010667

PATIENT
  Age: 62 Year
  Sex: Female

DRUGS (5)
  1. ZYPREXA [Suspect]
     Active Substance: OLANZAPINE
     Indication: SCHIZOPHRENIA
     Dosage: 20 MG, QD
     Route: 065
     Dates: start: 20130828, end: 20130910
  2. ZOPICLON STADA [Concomitant]
     Indication: PRODUCT USED FOR UNKNOWN INDICATION
     Dosage: 7.5 DF, QD
     Route: 065
     Dates: start: 20130828, end: 20130902
  3. DIAZEPAM. [Concomitant]
     Active Substance: DIAZEPAM
     Indication: PRODUCT USED FOR UNKNOWN INDICATION
     Dosage: 5 DF, QD
     Route: 065
     Dates: start: 20130903, end: 20130910
  4. COTRIM [Interacting]
     Active Substance: SULFAMETHOXAZOLE\TRIMETHOPRIM
     Indication: PRODUCT USED FOR UNKNOWN INDICATION
     Dosage: 1920 DF, QD
     Route: 065
     Dates: start: 20130902, end: 20130908
  5. ZYPREXA [Interacting]
     Active Substance: OLANZAPINE
     Dosage: 15 MG, UNK
     Route: 065

REACTIONS (3)
  - Drug interaction [Recovering/Resolving]
  - Leukopenia [Recovering/Resolving]
  - Thrombocytopenia [Recovering/Resolving]

NARRATIVE: CASE EVENT DATE: 201309
